FAERS Safety Report 5980242-4 (Version None)
Quarter: 2008Q4

REPORT INFORMATION
  Report Type: 
  Country: None (occurrence: None)
  Receive Date: 20081205
  Receipt Date: 20081125
  Transmission Date: 20090506
  Serious: Yes (Hospitalization)
  Sender: FDA-Public Use
  Company Number: PHHY2008TH29658

PATIENT
  Sex: Male

DRUGS (1)
  1. GLEEVEC [Suspect]
     Dosage: UNK
     Route: 048
     Dates: end: 20081101

REACTIONS (8)
  - BLAST CELLS PRESENT [None]
  - BRAIN OPERATION [None]
  - CENTRAL NERVOUS SYSTEM LESION [None]
  - CEREBROVASCULAR ACCIDENT [None]
  - CHLOROMA [None]
  - MUSCULOSKELETAL STIFFNESS [None]
  - RADIOTHERAPY [None]
  - VISION BLURRED [None]
